FAERS Safety Report 25005867 (Version 4)
Quarter: 2025Q1

REPORT INFORMATION
  Report Type: Spontaneous
  Country: US (occurrence: US)
  Receive Date: 20250224
  Receipt Date: 20250303
  Transmission Date: 20250408
  Serious: No
  Sender: PFIZER
  Company Number: US-PFIZER INC-202500041013

PATIENT
  Age: 78 Year
  Sex: Female

DRUGS (1)
  1. TUKYSA [Suspect]
     Active Substance: TUCATINIB
     Dosage: TAKE 300MG ORALLY TWICE DAILY
     Route: 048

REACTIONS (3)
  - Brain fog [Unknown]
  - Memory impairment [Unknown]
  - Phantom limb syndrome [Unknown]
